FAERS Safety Report 8737895 (Version 3)
Quarter: 2013Q4

REPORT INFORMATION
  Report Type: Spontaneous
  Country: US (occurrence: US)
  Receive Date: 20120823
  Receipt Date: 20131031
  Transmission Date: 20140711
  Serious: Yes (Hospitalization, Other)
  Sender: FDA-Public Use
  Company Number: US-009507513-1208USA003870

PATIENT
  Sex: Female

DRUGS (5)
  1. EMEND [Suspect]
     Indication: PROPHYLAXIS OF NAUSEA AND VOMITING
     Dosage: UNK
     Route: 048
     Dates: start: 20120713, end: 20120715
  2. EMEND [Suspect]
     Dosage: UNK
     Route: 048
     Dates: start: 20120803, end: 201208
  3. TAC [Concomitant]
  4. ZOFRAN [Concomitant]
  5. DEXAMETHASONE [Concomitant]

REACTIONS (2)
  - Convulsion [Recovered/Resolved]
  - Convulsion [Recovered/Resolved]
